FAERS Safety Report 24002616 (Version 1)
Quarter: 2024Q2

REPORT INFORMATION
  Report Type: Other
  Country: GB (occurrence: GB)
  Receive Date: 20240623
  Receipt Date: 20240623
  Transmission Date: 20240716
  Serious: Yes (Hospitalization, Other)
  Sender: FDA-Public Use
  Company Number: GB-DENTSPLY-2024SCDP000183

PATIENT
  Age: 56 Year
  Sex: Female

DRUGS (3)
  1. LIDOCAINE HYDROCHLORIDE AND EPINEPHRINE BITARTRATE [Suspect]
     Active Substance: EPINEPHRINE BITARTRATE\LIDOCAINE HYDROCHLORIDE
     Indication: Dental local anaesthesia
     Dosage: UNK DOSE OF 2% ADRENALINE AND LIDOCAINE INJECTION 2.2 ML (1:80 000) (NUMBER OF SEPARATE DOSES) VIA I
     Dates: start: 20231214, end: 20231214
  2. LIDOCAINE HYDROCHLORIDE AND EPINEPHRINE BITARTRATE [Suspect]
     Active Substance: EPINEPHRINE BITARTRATE\LIDOCAINE HYDROCHLORIDE
     Dosage: UNK DOSE OF 2% ADRENALINE AND LIDOCAINE INJECTION 2.2 ML (1:80 000) VIA INFERIOR ALVEOLAR NERVE BLOC
     Dates: start: 20240119, end: 20240119
  3. ARTICAINE HYDROCHLORIDE\EPINEPHRINE HYDROCHLORIDE [Suspect]
     Active Substance: ARTICAINE HYDROCHLORIDE\EPINEPHRINE HYDROCHLORIDE
     Indication: Dental local anaesthesia
     Dosage: UNK DOSE OF 4% ARTICAINE WITH ADRENALINE INJECTION 2.2 ML (1:100 000) VIA BUCCAL INFILTRATION
     Dates: start: 20231214, end: 20231214

REACTIONS (9)
  - Monoplegia [Recovered/Resolved]
  - Ophthalmoplegia [Recovered/Resolved]
  - Aphasia [Recovered/Resolved]
  - Injection site warmth [Recovered/Resolved]
  - Injection site pain [Recovered/Resolved]
  - Facial paralysis [Recovered/Resolved]
  - Headache [Recovered/Resolved]
  - Diplopia [Recovered/Resolved]
  - Bradycardia [Recovered/Resolved]

NARRATIVE: CASE EVENT DATE: 20231214
